FAERS Safety Report 16712947 (Version 1)
Quarter: 2019Q3

REPORT INFORMATION
  Report Type: Spontaneous
  Country: FR (occurrence: FR)
  Receive Date: 20190817
  Receipt Date: 20190817
  Transmission Date: 20191004
  Serious: Yes (Hospitalization)
  Sender: FDA-Public Use
  Company Number: FR-AUROBINDO-AUR-APL-2019-053142

PATIENT

DRUGS (1)
  1. PARACETAMOL [Suspect]
     Active Substance: ACETAMINOPHEN
     Indication: TOOTHACHE
     Dosage: 9 GRAM, ONCE A DAY
     Route: 048
     Dates: start: 20190617, end: 20190617

REACTIONS (1)
  - Jaundice acholuric [Unknown]

NARRATIVE: CASE EVENT DATE: 20190619
